FAERS Safety Report 13783918 (Version 1)
Quarter: 2017Q3

REPORT INFORMATION
  Report Type: Spontaneous
  Country: GB (occurrence: GB)
  Receive Date: 20170724
  Receipt Date: 20170724
  Transmission Date: 20171127
  Serious: Yes (Life-Threatening, Hospitalization)
  Sender: FDA-Public Use
  Company Number: GB-PFIZER INC-552684

PATIENT
  Age: 51 Year
  Sex: Female

DRUGS (7)
  1. SULPHASALAZINE [Suspect]
     Active Substance: SULFASALAZINE
     Indication: PSORIATIC ARTHROPATHY
     Dosage: 500 MG, FREQ: 1 DAY, INTERVAL: 3
     Route: 048
  2. LEVOTHYROXINE. [Concomitant]
     Active Substance: LEVOTHYROXINE
     Dosage: 100 MG, UNK
     Route: 048
  3. METHOTREXATE SODIUM. [Suspect]
     Active Substance: METHOTREXATE SODIUM
     Indication: PSORIATIC ARTHROPATHY
     Dosage: 20 MG, FREQ: 1 WEEK
     Route: 048
     Dates: end: 20100312
  4. BENDROFLUMETHIAZIDE [Concomitant]
     Active Substance: BENDROFLUMETHIAZIDE
     Dosage: 2.5 MG, UNK
     Route: 048
     Dates: start: 20100316
  5. KETOPROFEN. [Concomitant]
     Active Substance: KETOPROFEN
     Dosage: 200 MG, UNK
     Route: 048
     Dates: start: 20100317
  6. FLUOXETINE [Concomitant]
     Active Substance: FLUOXETINE HYDROCHLORIDE
     Dosage: 20 MG, UNK
     Route: 048
  7. COCODAMOL [Concomitant]
     Active Substance: ACETAMINOPHEN\CODEINE PHOSPHATE
     Dosage: 2 DF, FREQ: 1 DAY, INTERVAL: 4
     Route: 048

REACTIONS (7)
  - Acute kidney injury [Unknown]
  - Diarrhoea [Unknown]
  - Neutropenic sepsis [Not Recovered/Not Resolved]
  - Folate deficiency [Unknown]
  - Anaemia [Unknown]
  - Impetigo [Unknown]
  - Pancytopenia [Not Recovered/Not Resolved]

NARRATIVE: CASE EVENT DATE: 20100312
